FAERS Safety Report 16049006 (Version 3)
Quarter: 2019Q2

REPORT INFORMATION
  Report Type: Spontaneous
  Country: US (occurrence: US)
  Receive Date: 20190307
  Receipt Date: 20190418
  Transmission Date: 20190711
  Serious: Yes (Other)
  Sender: FDA-Public Use
  Company Number: US-ASTRAZENECA-2018SF33715

PATIENT
  Age: 15999 Day
  Sex: Male
  Weight: 183.3 kg

DRUGS (16)
  1. PANTOPRAZOLE [Concomitant]
     Active Substance: PANTOPRAZOLE
  2. CARVEDILOL. [Concomitant]
     Active Substance: CARVEDILOL
  3. AMLODIPINE [Concomitant]
     Active Substance: AMLODIPINE BESYLATE
  4. LASIX [Concomitant]
     Active Substance: FUROSEMIDE
  5. PROTONIX [Concomitant]
     Active Substance: PANTOPRAZOLE SODIUM
  6. DIGOXIN. [Concomitant]
     Active Substance: DIGOXIN
  7. WARFARIN [Concomitant]
     Active Substance: WARFARIN
  8. FUROSEMIDE. [Concomitant]
     Active Substance: FUROSEMIDE
  9. TORSEMIDE. [Concomitant]
     Active Substance: TORSEMIDE
  10. PRILOSEC OTC [Suspect]
     Active Substance: OMEPRAZOLE MAGNESIUM
     Indication: GASTROOESOPHAGEAL REFLUX DISEASE
     Route: 048
     Dates: start: 2009, end: 2016
  11. ASPIRIN. [Concomitant]
     Active Substance: ASPIRIN
  12. LEVOFLOXACIN. [Concomitant]
     Active Substance: LEVOFLOXACIN
  13. BUMETANIDE. [Concomitant]
     Active Substance: BUMETANIDE
  14. LISINOPRIL. [Concomitant]
     Active Substance: LISINOPRIL
  15. TRAMADOL. [Concomitant]
     Active Substance: TRAMADOL
  16. PRILOSEC [Suspect]
     Active Substance: OMEPRAZOLE MAGNESIUM
     Route: 048
     Dates: start: 20090101, end: 20171231

REACTIONS (4)
  - Renal injury [Unknown]
  - Acute kidney injury [Not Recovered/Not Resolved]
  - Chronic kidney disease [Unknown]
  - Renal failure [Unknown]

NARRATIVE: CASE EVENT DATE: 20091002
